FAERS Safety Report 7547390-9 (Version None)
Quarter: 2011Q2

REPORT INFORMATION
  Report Type: 
  Country: None (occurrence: None)
  Receive Date: 20110614
  Receipt Date: 20110610
  Transmission Date: 20111010
  Serious: Yes (Other)
  Sender: FDA-Public Use
  Company Number: US-AMGEN-USASP2011015916

PATIENT
  Age: 56 Year
  Sex: Male

DRUGS (4)
  1. NPLATE [Suspect]
     Indication: IDIOPATHIC THROMBOCYTOPENIC PURPURA
     Dosage: 1.1 A?G/KG, UNK
     Dates: start: 20100324
  2. CORTICOSTEROIDS [Concomitant]
  3. MITOMYCIN [Concomitant]
  4. FLUOROURACIL [Concomitant]

REACTIONS (2)
  - ANAL CANCER [None]
  - PLATELET COUNT DECREASED [None]
